FAERS Safety Report 15365272 (Version 1)
Quarter: 2018Q3

REPORT INFORMATION
  Report Type: Spontaneous
  Country: US (occurrence: US)
  Receive Date: 20180831
  Receipt Date: 20180831
  Transmission Date: 20181010
  Serious: Yes (Other)
  Sender: FDA-Public Use
  Company Number: None

PATIENT
  Age: 35 Year
  Sex: Female
  Weight: 72 kg

DRUGS (11)
  1. CVS SALINE NASAL SPRAY [Suspect]
     Active Substance: SODIUM CHLORIDE
     Indication: UPPER-AIRWAY COUGH SYNDROME
     Route: 055
     Dates: start: 20180130, end: 20180214
  2. HORIZANT [Concomitant]
     Active Substance: GABAPENTIN ENACARBIL
  3. MODAFINIL. [Concomitant]
     Active Substance: MODAFINIL
  4. CVS SALINE NASAL SPRAY [Suspect]
     Active Substance: SODIUM CHLORIDE
     Indication: NASAL DRYNESS
     Route: 055
     Dates: start: 20180130, end: 20180214
  5. XANAX [Concomitant]
     Active Substance: ALPRAZOLAM
  6. CVS SALINE NASAL SPRAY [Suspect]
     Active Substance: SODIUM CHLORIDE
     Indication: EPISTAXIS
     Route: 055
     Dates: start: 20180130, end: 20180214
  7. ESTER?C [Concomitant]
     Active Substance: CALCIUM\VITAMINS
  8. MOBIC [Concomitant]
     Active Substance: MELOXICAM
  9. ACETAMINOPHEN. [Concomitant]
     Active Substance: ACETAMINOPHEN
  10. KADIAN [Concomitant]
     Active Substance: MORPHINE SULFATE
  11. VITAMIN D3 [Concomitant]
     Active Substance: CHOLECALCIFEROL

REACTIONS (6)
  - Pneumonia [None]
  - Fatigue [None]
  - Pyrexia [None]
  - Cough [None]
  - Dyspnoea [None]
  - Bronchitis [None]

NARRATIVE: CASE EVENT DATE: 20180207
